FAERS Safety Report 24449566 (Version 1)
Quarter: 2024Q4

REPORT INFORMATION
  Report Type: Spontaneous
  Country: FR (occurrence: FR)
  Receive Date: 20241017
  Receipt Date: 20241017
  Transmission Date: 20250115
  Serious: Yes (Other)
  Sender: CELLTRION
  Company Number: None

PATIENT

DRUGS (34)
  1. RITUXIMAB [Suspect]
     Active Substance: RITUXIMAB
     Indication: Follicular lymphoma
     Dosage: 780 MG, PER CYCLE (RIXATHON + TRUXIMA)
     Route: 042
     Dates: start: 20210707, end: 20210728
  2. RITUXIMAB [Suspect]
     Active Substance: RITUXIMAB
     Dosage: 780 MG PER CYCLE J1, 4 CURES, RIXATHON
     Route: 042
     Dates: start: 20221214, end: 20230404
  3. RITUXIMAB [Suspect]
     Active Substance: RITUXIMAB
     Dosage: 1400 MG PER CYCLE, J1, 12 CURES, MABTHERA
     Route: 042
     Dates: start: 20180330, end: 20191206
  4. RITUXIMAB [Suspect]
     Active Substance: RITUXIMAB
     Dosage: 780 MG, PER CYCLE, J1, 5 CURES, MABTHERA + TRUXIMA
     Route: 042
     Dates: start: 20170829, end: 20180104
  5. RITUXIMAB [Suspect]
     Active Substance: RITUXIMAB
     Dosage: 780 MG, PER CYCLE, J1/J8/J15/J22, 1 CURE, RIXATHON
     Route: 042
     Dates: start: 20221026, end: 20221116
  6. BENDAMUSTINE [Suspect]
     Active Substance: BENDAMUSTINE
     Indication: Follicular lymphoma
     Dosage: 185 MG, PER CYCLE, J1-2, 5 CURES
     Route: 042
     Dates: start: 20170829, end: 20180105
  7. REVLIMID [Suspect]
     Active Substance: LENALIDOMIDE
     Indication: Follicular lymphoma
     Dosage: 10 MG, EVERY 1 DAY, J1-21, 4 CYCLES
     Route: 048
     Dates: start: 20221214, end: 20230404
  8. PREDNISONE [Concomitant]
     Active Substance: PREDNISONE
     Indication: Chemotherapy side effect prophylaxis
     Dosage: 80 MG, PER CYCLE, J1, 12 CYCLES
     Route: 048
     Dates: start: 20180330, end: 20191206
  9. ONDANSETRON [Concomitant]
     Active Substance: ONDANSETRON
     Indication: Prophylaxis of nausea and vomiting
     Dosage: 8 MG PER CYCLE, SOLUTION INJECTABLE, J1-2, 5 CYCLES
     Route: 042
     Dates: start: 20170829, end: 20180105
  10. TRANXENE [Concomitant]
     Active Substance: CLORAZEPATE DIPOTASSIUM
     Indication: Psychotic disorder
     Dosage: 10 MG, EVERY 1 DAY
     Route: 048
  11. ZIEXTENZO [Concomitant]
     Active Substance: PEGFILGRASTIM-BMEZ
     Indication: Chemotherapy side effect prophylaxis
     Dosage: 1 DF PER CYCLE, SOLUTION INJECTABLE, J4, 5 CYCLES
     Route: 058
     Dates: start: 20170901, end: 20180107
  12. ABILIFY [Concomitant]
     Active Substance: ARIPIPRAZOLE
     Indication: Psychotic disorder
     Dosage: 15 MG, EVERY 1 DAY
     Route: 048
  13. XULTOPHY 100/3.6 [Concomitant]
     Active Substance: INSULIN DEGLUDEC\LIRAGLUTIDE
     Indication: Type 2 diabetes mellitus
     Dosage: 24 IU EVERY 1 DAY SOLUTION INJECTABLE
     Route: 058
  14. METFORMIN HYDROCHLORIDE [Concomitant]
     Active Substance: METFORMIN HYDROCHLORIDE
     Indication: Type 2 diabetes mellitus
     Dosage: 1000 MG, EVERY 12 HOURS
     Route: 048
  15. ARTANE [Concomitant]
     Active Substance: TRIHEXYPHENIDYL HYDROCHLORIDE
     Indication: Parkinsonism
     Dosage: 4 MG, EVERY 1 DAY
     Route: 048
  16. LEVOCETIRIZINE DIHYDROCHLORIDE [Concomitant]
     Active Substance: LEVOCETIRIZINE DIHYDROCHLORIDE
     Indication: Chemotherapy side effect prophylaxis
     Dosage: 10 MILLIGRAM, PER CYCLE, J1, 12 CYCLES
     Route: 048
     Dates: start: 20180330, end: 20191206
  17. LEVOCETIRIZINE DIHYDROCHLORIDE [Concomitant]
     Active Substance: LEVOCETIRIZINE DIHYDROCHLORIDE
     Dosage: 10 MILLIGRAM, PER CYCLE, J1, 5 CYCLES
     Route: 048
     Dates: start: 20170829, end: 20180105
  18. LEVOCETIRIZINE DIHYDROCHLORIDE [Concomitant]
     Active Substance: LEVOCETIRIZINE DIHYDROCHLORIDE
     Dosage: 10 MILLIGRAM, PER CYCLE, J1/J8/J15/J22, 1 CYCLE
     Route: 048
     Dates: start: 20221026, end: 20221116
  19. LEVOCETIRIZINE DIHYDROCHLORIDE [Concomitant]
     Active Substance: LEVOCETIRIZINE DIHYDROCHLORIDE
     Dosage: 10 MILLIGRAM, PER CYCLE, J1/J8/J15/J22, 1 CYCLE
     Route: 048
     Dates: start: 20210707, end: 20210728
  20. LEVOCETIRIZINE DIHYDROCHLORIDE [Concomitant]
     Active Substance: LEVOCETIRIZINE DIHYDROCHLORIDE
     Dosage: 10 MILLIGRAM, PER CYCLE, J1, 4 CYCLES
     Route: 048
     Dates: start: 20221214, end: 20230404
  21. ACETAMINOPHEN [Concomitant]
     Active Substance: ACETAMINOPHEN
     Indication: Chemotherapy side effect prophylaxis
     Dosage: 1 G, PER CYCLE, J1, 12 CYCLES
     Route: 042
     Dates: start: 20180330, end: 20191206
  22. ACETAMINOPHEN [Concomitant]
     Active Substance: ACETAMINOPHEN
     Dosage: 1 G, PER CYCLE, J1, 5 CYCLES
     Route: 042
     Dates: start: 20170829, end: 20180105
  23. ACETAMINOPHEN [Concomitant]
     Active Substance: ACETAMINOPHEN
     Dosage: 1 G, PER CYCLE, J1, 4 CYCLES
     Route: 042
     Dates: start: 20221214, end: 20230404
  24. ACETAMINOPHEN [Concomitant]
     Active Substance: ACETAMINOPHEN
     Dosage: 1 G, PER CYCLE, J1/J8/J15/J22, 1 CYCLE
     Route: 042
     Dates: start: 20221026, end: 20221116
  25. ACETAMINOPHEN [Concomitant]
     Active Substance: ACETAMINOPHEN
     Dosage: 1 G, PER CYCLE, J1/J8/J15/J22, 1 CYCLE
     Route: 042
     Dates: start: 20210707, end: 20210728
  26. CYAMEMAZINE [Concomitant]
     Active Substance: CYAMEMAZINE
     Indication: Psychotic disorder
     Dosage: 25 MILLIGRAM, EVERY 1 DAY
     Route: 048
  27. ATOVAQUONE [Concomitant]
     Active Substance: ATOVAQUONE
     Indication: Opportunistic infection prophylaxis
     Dosage: 2 DF, EVERY 1 DAY
     Route: 048
  28. ROSUVASTATIN [Concomitant]
     Active Substance: ROSUVASTATIN
     Indication: Cardiovascular event prophylaxis
     Dosage: 5 MG, EVERY 1 DAY
     Route: 048
  29. LEVOTHYROXINE [Concomitant]
     Active Substance: LEVOTHYROXINE
     Indication: Hypothyroidism
     Dosage: 25 MICROGRAM, EVERY 1 DAY
     Route: 048
  30. METHYLPREDNISOLONE [Concomitant]
     Active Substance: METHYLPREDNISOLONE
     Indication: Prophylaxis of nausea and vomiting
     Dosage: 80 MG, PER CYCLE, J1/J8/J15/J22, 1 CYCLE
     Route: 042
     Dates: start: 20221026, end: 20221116
  31. METHYLPREDNISOLONE [Concomitant]
     Active Substance: METHYLPREDNISOLONE
     Dosage: 80 MG, PER CYCLE, J1, 5 CYCLES
     Route: 042
     Dates: start: 20221214, end: 20230404
  32. METHYLPREDNISOLONE [Concomitant]
     Active Substance: METHYLPREDNISOLONE
     Dosage: 80 MG, PER CYCLE, J1/J8/J15/J22, 1 CYCLE
     Route: 042
     Dates: start: 20210707, end: 20210728
  33. METHYLPREDNISOLONE [Concomitant]
     Active Substance: METHYLPREDNISOLONE
     Dosage: 80 MG, PER CYCLE, J1, 5 CYCLES
     Route: 042
     Dates: start: 20170829, end: 20180105
  34. VALACYCLOVIR HYDROCHLORIDE [Concomitant]
     Active Substance: VALACYCLOVIR HYDROCHLORIDE
     Indication: Opportunistic infection prophylaxis
     Dosage: 1000 MG, EVERY 1 DAY
     Route: 048

REACTIONS (1)
  - Portal hypertension [Recovering/Resolving]

NARRATIVE: CASE EVENT DATE: 20230315
